FAERS Safety Report 8825874 (Version 3)
Quarter: 2015Q2

REPORT INFORMATION
  Report Type: Report from Study
  Country: US (occurrence: US)
  Receive Date: 20121005
  Receipt Date: 20150423
  Transmission Date: 20150821
  Serious: Yes (Death, Life-Threatening, Hospitalization)
  Sender: FDA-Public Use
  Company Number: US-BRISTOL-MYERS SQUIBB COMPANY-17001025

PATIENT
  Age: 73 Year
  Sex: Male

DRUGS (1)
  1. IPILIMUMAB [Suspect]
     Active Substance: IPILIMUMAB
     Indication: MALIGNANT MELANOMA
     Dosage: NO OF COURSES:2.
     Route: 042
     Dates: start: 20120803, end: 20120914

REACTIONS (2)
  - Diarrhoea [Recovered/Resolved]
  - Intestinal perforation [Fatal]

NARRATIVE: CASE EVENT DATE: 20120924
